FAERS Safety Report 20499635 (Version 2)
Quarter: 2023Q1

REPORT INFORMATION
  Report Type: Report from Study
  Country: US (occurrence: US)
  Receive Date: 20220222
  Receipt Date: 20230328
  Transmission Date: 20230417
  Serious: Yes (Hospitalization, Other)
  Sender: FDA-Public Use
  Company Number: US-GILEAD-2022-0570261

PATIENT
  Sex: Male

DRUGS (20)
  1. AZTREONAM LYSINE [Suspect]
     Active Substance: AZTREONAM LYSINE
     Indication: Pseudomonas infection
     Dosage: 75MG|RECONSTITUTE WITH 1ML SUPPLIED DILUENT + NEBULIZE 3 TIMES DAILY FOR 28 DAYS ON, 28 DAYS OFF.
     Route: 065
  2. ADVAIR HFA [Concomitant]
     Active Substance: FLUTICASONE PROPIONATE\SALMETEROL XINAFOATE
  3. FLUTICASONA + SALMETEROL CICLUM [Concomitant]
  4. CHOICEFUL VITAMINS [Concomitant]
  5. SODIUM CHLORIDE [Concomitant]
     Active Substance: SODIUM CHLORIDE
  6. HYALURONATE SODIUM [Concomitant]
     Active Substance: HYALURONATE SODIUM
  7. AZITHROMYCIN [Concomitant]
     Active Substance: AZITHROMYCIN
  8. FINASTERIDE [Concomitant]
     Active Substance: FINASTERIDE
  9. GABAPENTIN [Concomitant]
     Active Substance: GABAPENTIN
  10. IBUPROFEN [Concomitant]
     Active Substance: IBUPROFEN
  11. AQUADEKS [BETACAROTENE;BIOTIN;CALCIUM PANTOTHENATE;COLECALCIFEROL;CYAN [Concomitant]
  12. TRAMADOL HCL [Concomitant]
     Active Substance: TRAMADOL HYDROCHLORIDE
  13. TRAZODONE HYDROCHLORIDE [Concomitant]
     Active Substance: TRAZODONE HYDROCHLORIDE
  14. ZOLPIDEM TARTRATE [Concomitant]
     Active Substance: ZOLPIDEM TARTRATE
  15. CIALIS [Concomitant]
     Active Substance: TADALAFIL
  16. SUMATRIPTAN SUCCINATE [Concomitant]
     Active Substance: SUMATRIPTAN SUCCINATE
  17. CREON 5 [Concomitant]
  18. FUROSEMIDE [Concomitant]
     Active Substance: FUROSEMIDE
  19. TADALAFIL [Concomitant]
     Active Substance: TADALAFIL
  20. K-DUR [Concomitant]
     Active Substance: POTASSIUM CHLORIDE

REACTIONS (7)
  - Pneumonia [Unknown]
  - Dyspnoea [Unknown]
  - Sphingomonas paucimobilis infection [Unknown]
  - Lung disorder [Unknown]
  - Arthralgia [Unknown]
  - Paraesthesia [Unknown]
  - Off label use [Unknown]
